FAERS Safety Report 18387988 (Version 2)
Quarter: 2020Q4

REPORT INFORMATION
  Report Type: Spontaneous
  Country: JP (occurrence: JP)
  Receive Date: 20201015
  Receipt Date: 20201021
  Transmission Date: 20210114
  Serious: Yes (Other)
  Sender: FDA-Public Use
  Company Number: JP-ASTRAZENECA-2020SF31243

PATIENT
  Age: 70 Year
  Sex: Male

DRUGS (1)
  1. DAPAGLIFLOZIN PROPYLENE GLYCOLATE HYDRATE [Suspect]
     Active Substance: DAPAGLIFLOZIN PROPANEDIOL
     Indication: DIABETES MELLITUS
     Dosage: DOSE UNKNOWN
     Route: 048

REACTIONS (1)
  - Ketoacidosis [Unknown]

NARRATIVE: CASE EVENT DATE: 2020
